FAERS Safety Report 16932308 (Version 2)
Quarter: 2020Q2

REPORT INFORMATION
  Report Type: Report from Study
  Country: NL (occurrence: NL)
  Receive Date: 20191017
  Receipt Date: 20200602
  Transmission Date: 20200713
  Serious: Yes (Other)
  Sender: FDA-Public Use
  Company Number: NL-TOLMAR, INC.-19NL000577

PATIENT
  Age: 90 Year
  Sex: Male

DRUGS (2)
  1. ELIGARD [Suspect]
     Active Substance: LEUPROLIDE ACETATE
     Dosage: 45 MG, Q6MONTHS
     Route: 058
     Dates: start: 20190404
  2. ELIGARD [Suspect]
     Active Substance: LEUPROLIDE ACETATE
     Indication: PROSTATE CANCER
     Dosage: 45 MG, Q6MONTHS
     Route: 058
     Dates: start: 20191001

REACTIONS (2)
  - Fall [Unknown]
  - Hip fracture [Recovered/Resolved]

NARRATIVE: CASE EVENT DATE: 20190903
